FAERS Safety Report 12324679 (Version 1)
Quarter: 2016Q2

REPORT INFORMATION
  Report Type: Report from Study
  Country: US (occurrence: US)
  Receive Date: 20160502
  Receipt Date: 20160502
  Transmission Date: 20160815
  Serious: Yes (Hospitalization)
  Sender: FDA-Public Use
  Company Number: US-ABBVIE-16K-163-1614946-00

PATIENT
  Age: 72 Year
  Sex: Male
  Weight: 74.46 kg

DRUGS (8)
  1. HUMIRA [Suspect]
     Active Substance: ADALIMUMAB
     Route: 058
     Dates: start: 201505
  2. HUMIRA [Suspect]
     Active Substance: ADALIMUMAB
     Indication: CROHN^S DISEASE
     Dosage: LOADING DOSE
     Route: 058
     Dates: start: 201406, end: 201406
  3. HUMIRA [Suspect]
     Active Substance: ADALIMUMAB
     Route: 058
     Dates: start: 201406, end: 201505
  4. VESICARE [Suspect]
     Active Substance: SOLIFENACIN SUCCINATE
     Indication: POLLAKIURIA
     Route: 065
     Dates: end: 201603
  5. OXYBUTYNIN [Concomitant]
     Active Substance: OXYBUTYNIN
     Indication: POLLAKIURIA
  6. FINASTERIDE. [Concomitant]
     Active Substance: FINASTERIDE
     Indication: PROSTATOMEGALY
  7. HUMIRA [Suspect]
     Active Substance: ADALIMUMAB
     Dosage: LOADING DOSE, TWO WEEKS AFTER 160 MG DOSE
     Route: 058
     Dates: start: 201406, end: 201406
  8. NITROFURANTOIN. [Concomitant]
     Active Substance: NITROFURANTOIN
     Indication: INFECTION PROPHYLAXIS

REACTIONS (7)
  - Adhesion [Recovered/Resolved]
  - Drug effect decreased [Unknown]
  - Diarrhoea [Unknown]
  - Drug hypersensitivity [Not Recovered/Not Resolved]
  - Choking sensation [Recovered/Resolved]
  - Diarrhoea [Recovered/Resolved]
  - Dyspnoea [Recovered/Resolved]

NARRATIVE: CASE EVENT DATE: 201505
